FAERS Safety Report 9335924 (Version 3)
Quarter: 2013Q3

REPORT INFORMATION
  Report Type: Report from Study
  Country: AU (occurrence: AU)
  Receive Date: 20130607
  Receipt Date: 20130716
  Transmission Date: 20140515
  Serious: Yes (Hospitalization)
  Sender: FDA-Public Use
  Company Number: AU-ROCHE-1232082

PATIENT
  Age: 76 Year
  Sex: Male
  Weight: 69 kg

DRUGS (15)
  1. BEVACIZUMAB [Suspect]
     Indication: COLORECTAL CANCER METASTATIC
     Dosage: 2/52
     Route: 042
     Dates: start: 20130116
  2. LEUCOVORIN CALCIUM [Suspect]
     Indication: COLORECTAL CANCER METASTATIC
     Route: 042
     Dates: start: 20130116, end: 20130417
  3. 5-FU [Suspect]
     Indication: COLORECTAL CANCER METASTATIC
     Route: 040
     Dates: start: 20130116, end: 20130417
  4. 5-FU [Suspect]
     Route: 041
     Dates: start: 20130116, end: 20130419
  5. OXALIPLATIN [Suspect]
     Indication: COLORECTAL CANCER METASTATIC
     Dosage: 2/52
     Route: 042
     Dates: start: 20130116
  6. SPIRIVA [Concomitant]
     Route: 065
     Dates: end: 2006
  7. PARIET [Concomitant]
     Route: 065
     Dates: start: 2006
  8. DUODART [Concomitant]
     Route: 065
     Dates: start: 2011
  9. CLEXANE [Concomitant]
     Route: 065
     Dates: start: 20130117
  10. ATACAND [Concomitant]
     Route: 065
     Dates: start: 2006
  11. TRIMETHOPRIM [Concomitant]
     Route: 065
     Dates: start: 20130426
  12. BICOR (AUSTRALIA) [Concomitant]
     Route: 065
     Dates: start: 2006
  13. BISOPROLOL [Concomitant]
  14. DUTASTERIDE [Concomitant]
  15. FINASTERIDE [Concomitant]

REACTIONS (1)
  - Atrial fibrillation [Recovered/Resolved]
